FAERS Safety Report 15603074 (Version 1)
Quarter: 2018Q4

REPORT INFORMATION
  Report Type: Spontaneous
  Country: BR (occurrence: BR)
  Receive Date: 20181109
  Receipt Date: 20181109
  Transmission Date: 20190205
  Serious: Yes (Other)
  Sender: FDA-Public Use
  Company Number: BR-ABBVIE-18K-020-2547072-00

PATIENT
  Age: 66 Year
  Sex: Female

DRUGS (3)
  1. CORTISONE [Concomitant]
     Active Substance: CORTISONE\HYDROCORTISONE
     Indication: PRODUCT USED FOR UNKNOWN INDICATION
  2. ENBREL [Suspect]
     Active Substance: ETANERCEPT
     Indication: RHEUMATIC DISORDER
     Route: 065
     Dates: start: 20181023, end: 2018
  3. HUMIRA [Suspect]
     Active Substance: ADALIMUMAB
     Indication: PRODUCT USED FOR UNKNOWN INDICATION
     Route: 058

REACTIONS (14)
  - Hernia obstructive [Unknown]
  - Malaise [Unknown]
  - Spondylitis [Unknown]
  - Drug effect incomplete [Unknown]
  - Spinal disorder [Unknown]
  - Polyarthritis [Unknown]
  - Mobility decreased [Unknown]
  - Tendonitis [Unknown]
  - Intervertebral disc protrusion [Unknown]
  - Osteoarthritis [Unknown]
  - Glaucoma [Unknown]
  - Spinal pain [Unknown]
  - Rheumatic disorder [Unknown]
  - Loss of personal independence in daily activities [Unknown]
